FAERS Safety Report 4887124-X (Version None)
Quarter: 2006Q1

REPORT INFORMATION
  Report Type: 
  Country: None (occurrence: None)
  Receive Date: 20060120
  Receipt Date: 20050218
  Transmission Date: 20060701
  Serious: Yes (Hospitalization)
  Sender: FDA-Public Use
  Company Number: US-MERCK-0502USA03001

PATIENT
  Age: 70 Year
  Sex: Male
  Weight: 91 kg

DRUGS (6)
  1. MAXZIDE [Concomitant]
     Route: 065
  2. VIOXX [Suspect]
     Indication: ARTHRITIS
     Route: 048
     Dates: start: 20010306, end: 20040816
  3. GLUCOTROL [Concomitant]
     Route: 065
  4. CARDIZEM [Concomitant]
     Route: 065
  5. AVANDIA [Concomitant]
     Route: 065
  6. GLUCOPHAGE [Concomitant]
     Route: 065

REACTIONS (1)
  - MYOCARDIAL INFARCTION [None]
